FAERS Safety Report 13686910 (Version 1)
Quarter: 2017Q2

REPORT INFORMATION
  Report Type: Report from Study
  Country: US (occurrence: BR)
  Receive Date: 20170623
  Receipt Date: 20170623
  Transmission Date: 20170830
  Serious: Yes (Hospitalization)
  Sender: FDA-Public Use
  Company Number: US-SUNOVION-2017SUN002657

PATIENT
  Sex: Female
  Weight: 64 kg

DRUGS (1)
  1. INDACATEROL [Suspect]
     Active Substance: INDACATEROL
     Indication: DYSPNOEA
     Dosage: UNK, AS NECESSARY
     Route: 055

REACTIONS (3)
  - Product use in unapproved indication [Unknown]
  - Pancreatitis [Unknown]
  - Abdominal pain [Not Recovered/Not Resolved]
